FAERS Safety Report 19408629 (Version 1)
Quarter: 2021Q2

REPORT INFORMATION
  Report Type: Spontaneous
  Country: GB (occurrence: GB)
  Receive Date: 20210613
  Receipt Date: 20210613
  Transmission Date: 20210717
  Serious: Yes (Other)
  Sender: FDA-Public Use
  Company Number: GB-TEVA-2021-GB-1920786

PATIENT
  Age: 44 Year
  Sex: Female

DRUGS (1)
  1. DIAZEPAM. [Suspect]
     Active Substance: DIAZEPAM
     Route: 065

REACTIONS (3)
  - Menstrual disorder [Unknown]
  - Premenstrual syndrome [Not Recovered/Not Resolved]
  - Premenstrual pain [Not Recovered/Not Resolved]

NARRATIVE: CASE EVENT DATE: 20210417
